FAERS Safety Report 6699479-4 (Version None)
Quarter: 2010Q2

REPORT INFORMATION
  Report Type: 
  Country: None (occurrence: None)
  Receive Date: 20100426
  Receipt Date: 20100408
  Transmission Date: 20101027
  Serious: Yes (Life-Threatening)
  Sender: FDA-Public Use
  Company Number: JP-SOLVAY-00310001410

PATIENT
  Age: 62 Year
  Sex: Female

DRUGS (26)
  1. LUVOX [Suspect]
     Indication: DEPRESSION
     Dosage: 25 MILLIGRAM(S)
     Route: 048
     Dates: start: 20100210, end: 20100215
  2. COTRIM [Suspect]
     Indication: MULTIPLE MYELOMA
     Route: 048
     Dates: start: 20100119, end: 20100215
  3. COTRIM [Suspect]
     Indication: MULTIPLE MYELOMA
     Route: 048
     Dates: start: 20090401
  4. NOVAMINE 15% [Suspect]
     Indication: MULTIPLE MYELOMA
     Dosage: 10 MILLIGRAM(S)
     Route: 048
     Dates: start: 20100106, end: 20100216
  5. ROPION     (FLURBIPROFEN AXETIL) [Suspect]
     Indication: MULTIPLE MYELOMA
     Dates: start: 20100210, end: 20100210
  6. MIRTAZAPINE [Concomitant]
  7. ALOSENN (SENNA LEAF-SENNA POD) [Concomitant]
  8. MAGMITT (MAGNESIUM OXIDE) [Concomitant]
  9. RIZE (CLOTIAZEPAM) [Concomitant]
  10. AMLODIN OD (AMLODIPINE BESILATE) [Concomitant]
  11. ASPARA POTASSIUM (POTASSIUM L-ASPARATE) [Concomitant]
  12. URSO 250 [Concomitant]
  13. OMEPRAZOLE [Concomitant]
  14. PREDNISOLONE [Concomitant]
  15. PRIMPERAN TAB [Concomitant]
  16. DECADRON [Concomitant]
  17. OXINORM (OXYCODONE HYDROCHLORIDE) [Concomitant]
  18. OXYCONTIN [Concomitant]
  19. ZOVIRAX [Concomitant]
  20. KYTRIL [Concomitant]
  21. ONCOVIN [Concomitant]
  22. ADRIAMYCIN PFS [Concomitant]
  23. HUMULIN R (INSULIN HUMAN (GENETICAL RECOMBINATION)) [Concomitant]
  24. NEUPOGEN [Concomitant]
  25. FIRSTCIN (CEFOZOPRAN HYDROCHLORIDE) [Concomitant]
  26. NEOPHAGEN       (GLYCYRRHIZIN_GLYCINE_CYSTEINE COMBINED DRUG) [Concomitant]

REACTIONS (1)
  - HEPATIC FUNCTION ABNORMAL [None]
